FAERS Safety Report 8356437-1 (Version None)
Quarter: 2012Q2

REPORT INFORMATION
  Report Type: 
  Country: None (occurrence: None)
  Receive Date: 20120514
  Receipt Date: 20120511
  Transmission Date: 20120825
  Serious: Yes (Other)
  Sender: FDA-Public Use
  Company Number: US-PFIZER INC-2012115743

PATIENT
  Sex: Female
  Weight: 74.83 kg

DRUGS (3)
  1. GABAPENTIN [Suspect]
     Indication: RESTLESS LEGS SYNDROME
     Dosage: 300 MG, 3X/DAY
  2. LISINOPRIL [Concomitant]
     Indication: HYPERTENSION
     Dosage: UNK
  3. NEURONTIN [Suspect]
     Indication: RESTLESS LEGS SYNDROME
     Dosage: 300 MG, 3X/DAY
     Route: 048
     Dates: end: 20120401

REACTIONS (4)
  - FATIGUE [None]
  - DRUG DEPENDENCE [None]
  - SOMNOLENCE [None]
  - RESTLESS LEGS SYNDROME [None]
